FAERS Safety Report 6836029-3 (Version None)
Quarter: 2010Q3

REPORT INFORMATION
  Report Type: 
  Country: None (occurrence: None)
  Receive Date: 20100713
  Receipt Date: 20100705
  Transmission Date: 20110219
  Serious: Yes (Hospitalization)
  Sender: FDA-Public Use
  Company Number: B0627970A

PATIENT
  Age: 55 Year
  Sex: Male

DRUGS (3)
  1. CEFUROXIME [Suspect]
     Indication: INFECTION
     Dosage: 500MG THREE TIMES PER DAY
     Route: 048
     Dates: start: 20090521
  2. AMPICILLIN SODIUM/SULBACTAM SODIUM [Concomitant]
     Dosage: 625MG PER DAY
     Route: 048
  3. ACETAMINOPHEN [Concomitant]
     Dosage: 1G PER DAY
     Route: 048

REACTIONS (2)
  - JAUNDICE [None]
  - LIVER FUNCTION TEST ABNORMAL [None]
